FAERS Safety Report 6027375-4 (Version None)
Quarter: 2009Q1

REPORT INFORMATION
  Report Type: 
  Country: None (occurrence: None)
  Receive Date: 20090105
  Receipt Date: 20081230
  Transmission Date: 20090719
  Serious: Yes (Hospitalization)
  Sender: FDA-Public Use
  Company Number: B0552422A

PATIENT
  Age: 28 Year
  Sex: Female

DRUGS (5)
  1. ELONTRIL [Suspect]
     Indication: DEPRESSION
     Dosage: 150MG PER DAY
     Route: 048
     Dates: start: 20081213
  2. VALPROATE SODIUM [Concomitant]
     Dosage: 900MG PER DAY
     Route: 048
     Dates: start: 20081201
  3. ROCIVERINE [Concomitant]
     Indication: ABDOMINAL PAIN
     Dosage: 20MG PER DAY
     Route: 030
     Dates: start: 20081215, end: 20081215
  4. ETHINYLOESTRADIOL + LEVONORGESTREL [Concomitant]
     Indication: CONTRACEPTION
     Route: 048
     Dates: start: 20071201, end: 20081101
  5. N-BUTYLSCOPOLAMINIUMBROMID [Concomitant]

REACTIONS (1)
  - DISORIENTATION [None]
